FAERS Safety Report 10177518 (Version 1)
Quarter: 2014Q2

REPORT INFORMATION
  Report Type: Spontaneous
  Country: US (occurrence: US)
  Receive Date: 20140516
  Receipt Date: 20140516
  Transmission Date: 20141212
  Serious: Yes (Other)
  Sender: FDA-Public Use
  Company Number: US-MALLINCKRODT-T201402097

PATIENT
  Sex: Male
  Weight: 34 kg

DRUGS (1)
  1. GABLOFEN [Suspect]
     Indication: MUSCLE SPASTICITY
     Dosage: 100 MCG/DAY
     Route: 037

REACTIONS (3)
  - Implant site erosion [Unknown]
  - Implant site infection [Unknown]
  - Excoriation [Unknown]
